FAERS Safety Report 4899090-1 (Version None)
Quarter: 2006Q1

REPORT INFORMATION
  Report Type: 
  Country: None (occurrence: None)
  Receive Date: 20060130
  Receipt Date: 20060120
  Transmission Date: 20060701
  Serious: Yes (Hospitalization)
  Sender: FDA-Public Use
  Company Number: 2006010799

PATIENT
  Age: 19 Year
  Sex: Female

DRUGS (2)
  1. ZOLOFT [Suspect]
     Indication: ILL-DEFINED DISORDER
     Dosage: 1 IN 1 D ORAL
     Route: 048
  2. SIBUTRAL (SIBUTRAMINE HYDROCHLORIDE) [Suspect]
     Indication: ILL-DEFINED DISORDER
     Dosage: 1 IN 1 D ORAL
     Route: 048

REACTIONS (14)
  - CONFUSIONAL STATE [None]
  - DISTURBANCE IN ATTENTION [None]
  - DRUG INEFFECTIVE [None]
  - HEADACHE [None]
  - HYPERHIDROSIS [None]
  - HYPOTENSION [None]
  - MALAISE [None]
  - NAUSEA [None]
  - SEROTONIN SYNDROME [None]
  - TACHYCARDIA [None]
  - TREMOR [None]
  - VERTIGO [None]
  - VISUAL DISTURBANCE [None]
  - VOMITING [None]
